FAERS Safety Report 24210619 (Version 3)
Quarter: 2024Q3

REPORT INFORMATION
  Report Type: Spontaneous
  Country: FR (occurrence: FR)
  Receive Date: 20240814
  Receipt Date: 20240826
  Transmission Date: 20241017
  Serious: Yes (Other)
  Sender: OTSUKA
  Company Number: None

PATIENT
  Age: 16 Year
  Sex: Male

DRUGS (6)
  1. ABILIFY [Suspect]
     Active Substance: ARIPIPRAZOLE
     Indication: Attention deficit hyperactivity disorder
     Dosage: 10 MG, QD (5 MG X 2/D)
     Route: 048
     Dates: start: 202309
  2. SERTRALINE HYDROCHLORIDE [Suspect]
     Active Substance: SERTRALINE HYDROCHLORIDE
     Indication: Depression
     Dosage: 50 MG, QD (50 MG X 1)
     Route: 048
     Dates: start: 202103, end: 202309
  3. SERTRALINE HYDROCHLORIDE [Suspect]
     Active Substance: SERTRALINE HYDROCHLORIDE
     Dosage: 100 MG, QD (100 MG X1/D)
     Route: 048
     Dates: start: 202309
  4. METHYLPHENIDATE HYDROCHLORIDE [Suspect]
     Active Substance: METHYLPHENIDATE HYDROCHLORIDE
     Indication: Attention deficit hyperactivity disorder
     Dosage: 18 MG, QD (18 MG X 1)
     Route: 048
     Dates: start: 202104, end: 202105
  5. METHYLPHENIDATE HYDROCHLORIDE [Suspect]
     Active Substance: METHYLPHENIDATE HYDROCHLORIDE
     Dosage: 36 MG, QD (36 MG X 1)
     Route: 048
     Dates: start: 202105
  6. MELATONIN [Suspect]
     Active Substance: MELATONIN
     Indication: Attention deficit hyperactivity disorder
     Dosage: 10 MG, QD (5 MG X 2/D)
     Route: 048
     Dates: start: 202101

REACTIONS (3)
  - Tooth loss [Recovered/Resolved with Sequelae]
  - Osteonecrosis of jaw [Not Recovered/Not Resolved]
  - Product use in unapproved indication [Unknown]

NARRATIVE: CASE EVENT DATE: 20230901
